FAERS Safety Report 5286109-1 (Version None)
Quarter: 2007Q1

REPORT INFORMATION
  Report Type: 
  Country: None (occurrence: None)
  Receive Date: 20070329
  Receipt Date: 20070319
  Transmission Date: 20070707
  Serious: Yes (Life-Threatening, Hospitalization)
  Sender: FDA-Public Use
  Company Number: 238479

PATIENT
  Age: 53 Year
  Sex: Male

DRUGS (4)
  1. RITUXAN [Suspect]
     Indication: RHEUMATOID ARTHRITIS
     Dosage: 1000 MG, INTRAVENOUS
     Route: 042
     Dates: start: 20070209
  2. LISINOPRIL [Concomitant]
  3. PROTONIX [Concomitant]
  4. PREDNISONE TAB [Concomitant]

REACTIONS (1)
  - MYOCARDIAL INFARCTION [None]
